FAERS Safety Report 20802604 (Version 1)
Quarter: 2022Q2

REPORT INFORMATION
  Report Type: Spontaneous
  Country: US (occurrence: None)
  Receive Date: 20220509
  Receipt Date: 20220509
  Transmission Date: 20220720
  Serious: Yes (Other)
  Sender: FDA-Public Use
  Company Number: None

PATIENT

DRUGS (1)
  1. GLATIRAMER [Suspect]
     Active Substance: GLATIRAMER
     Indication: Multiple sclerosis
     Dosage: FREQUENCY : 3 TIMES A WEEK;?
     Route: 030
     Dates: start: 20210503, end: 20220322

REACTIONS (7)
  - Relapsing multiple sclerosis [None]
  - Product substitution issue [None]
  - Injection site mass [None]
  - Hypoaesthesia [None]
  - Hypoaesthesia [None]
  - Anxiety [None]
  - Insurance issue [None]

NARRATIVE: CASE EVENT DATE: 20210503
